FAERS Safety Report 7677912-9 (Version None)
Quarter: 2011Q3

REPORT INFORMATION
  Report Type: 
  Country: None (occurrence: None)
  Receive Date: 20110811
  Receipt Date: 20110803
  Transmission Date: 20111222
  Serious: Yes (Hospitalization)
  Sender: FDA-Public Use
  Company Number: US-JNJFOC-20060704604

PATIENT
  Age: 22 Year
  Sex: Male

DRUGS (4)
  1. LITHIUM CARBONATE [Interacting]
     Indication: BIPOLAR DISORDER
  2. FLUOXETINE [Interacting]
     Indication: BIPOLAR DISORDER
  3. CLONAZEPAM [Concomitant]
     Indication: BIPOLAR DISORDER
  4. DEXTROMETHORPHAN HYDROBROMIDE [Suspect]
     Indication: PRODUCT USED FOR UNKNOWN INDICATION
     Dosage: ^SEVERAL BOTTLES^
     Route: 048

REACTIONS (3)
  - SEROTONIN SYNDROME [None]
  - DRUG ABUSE [None]
  - DRUG INTERACTION [None]
